FAERS Safety Report 14479445 (Version 3)
Quarter: 2019Q1

REPORT INFORMATION
  Report Type: Spontaneous
  Country: US (occurrence: US)
  Receive Date: 20180202
  Receipt Date: 20190117
  Transmission Date: 20190417
  Serious: No
  Sender: FDA-Public Use
  Company Number: US-UCBSA-2018003057

PATIENT
  Age: 70 Year
  Sex: Female
  Weight: 122.5 kg

DRUGS (7)
  1. LISINOPRIL. [Concomitant]
     Active Substance: LISINOPRIL
     Indication: BLOOD PRESSURE MEASUREMENT
     Dosage: 10 MG, ONCE DAILY (QD)
  2. NEUPRO [Suspect]
     Active Substance: ROTIGOTINE
     Dosage: 4 MG, ONCE DAILY (QD)
     Route: 062
     Dates: start: 201801
  3. NEUPRO [Suspect]
     Active Substance: ROTIGOTINE
     Indication: RESTLESS LEGS SYNDROME
     Dosage: STRENGTH: 1 MG
     Dates: start: 201712
  4. LOSARTAN. [Concomitant]
     Active Substance: LOSARTAN
     Indication: HYPERTENSION
     Dosage: 40 MG, ONCE DAILY (QD)
     Route: 048
  5. GABAPENTIN. [Concomitant]
     Active Substance: GABAPENTIN
     Indication: RESTLESS LEGS SYNDROME
     Dosage: 300 MG TABLET; 3 TABS QD AND 1 TAB QPM
     Route: 062
     Dates: start: 201712
  6. ASA [Concomitant]
     Active Substance: ASPIRIN
     Indication: CARDIAC DISORDER
     Dosage: 81 MG, ONCE DAILY (QD)
     Route: 048
  7. PRAVASTATIN. [Concomitant]
     Active Substance: PRAVASTATIN
     Indication: BLOOD CHOLESTEROL INCREASED
     Dosage: 40 MG, ONCE DAILY (QD)
     Route: 048

REACTIONS (9)
  - Dizziness [Not Recovered/Not Resolved]
  - Diarrhoea [Not Recovered/Not Resolved]
  - Intentional product misuse [Unknown]
  - Syncope [Recovered/Resolved]
  - Sleep disorder [Not Recovered/Not Resolved]
  - Sensory disturbance [Recovered/Resolved]
  - Feeling abnormal [Not Recovered/Not Resolved]
  - Product quality issue [Unknown]
  - Restless legs syndrome [Not Recovered/Not Resolved]

NARRATIVE: CASE EVENT DATE: 201801
